FAERS Safety Report 10151966 (Version 1)
Quarter: 2014Q2

REPORT INFORMATION
  Report Type: Spontaneous
  Country: JP (occurrence: JP)
  Receive Date: 20140505
  Receipt Date: 20140505
  Transmission Date: 20141212
  Serious: Yes (Death, Disabling)
  Sender: FDA-Public Use
  Company Number: JP-ROCHE-1391282

PATIENT
  Age: 44 Year
  Sex: Male

DRUGS (3)
  1. AVASTIN [Suspect]
     Indication: COLON CANCER
     Dosage: DOSAGE IS UNCERTAIN.
     Route: 041
  2. XELODA [Suspect]
     Indication: COLON CANCER
     Dosage: DOSAGE IS UNCERTAIN.
     Route: 048
  3. ELPLAT [Concomitant]
     Indication: COLON CANCER
     Dosage: DOSAGE IS UNCERTAIN.
     Route: 041

REACTIONS (2)
  - Colon cancer [Fatal]
  - Cerebral infarction [Unknown]
